FAERS Safety Report 7168242 (Version 3)
Quarter: 2012Q4

REPORT INFORMATION
  Report Type: Report from Study
  Country: GB (occurrence: GB)
  Receive Date: 20091105
  Receipt Date: 20121226
  Transmission Date: 20130627
  Serious: Yes (Hospitalization)
  Sender: FDA-Public Use
  Company Number: PHHO2009GB13427

PATIENT
  Age: 45 Year
  Sex: Female
  Weight: 75.6 kg

DRUGS (2)
  1. ACZ885 [Suspect]
     Indication: CRYOPYRIN ASSOCIATED PERIODIC SYNDROME
     Dosage: 150 mg every 8 weeks
     Route: 058
     Dates: start: 200503, end: 20090918
  2. ACZ885 [Suspect]
     Dosage: UNK
     Route: 058

REACTIONS (1)
  - Vaccination site cellulitis [Recovered/Resolved]
